FAERS Safety Report 15815341 (Version 1)
Quarter: 2019Q1

REPORT INFORMATION
  Report Type: Spontaneous
  Country: PT (occurrence: PT)
  Receive Date: 20190112
  Receipt Date: 20190112
  Transmission Date: 20190417
  Serious: Yes (Other)
  Sender: FDA-Public Use
  Company Number: PT-BAYER-2019-006627

PATIENT
  Age: 62 Year
  Sex: Female

DRUGS (2)
  1. AVELOX [Suspect]
     Active Substance: MOXIFLOXACIN HYDROCHLORIDE
     Indication: RESPIRATORY TRACT INFECTION
  2. BRUFEN [IBUPROFEN] [Suspect]
     Active Substance: IBUPROFEN
     Indication: RESPIRATORY TRACT INFECTION

REACTIONS (7)
  - Dyspnoea [Recovered/Resolved]
  - Malaise [Recovered/Resolved]
  - Rash papular [Recovered/Resolved]
  - Dizziness [Recovered/Resolved]
  - Angioedema [Recovered/Resolved]
  - Dermatitis bullous [Recovered/Resolved]
  - Feeling hot [Recovered/Resolved]

NARRATIVE: CASE EVENT DATE: 20151109
